FAERS Safety Report 10216938 (Version 1)
Quarter: 2014Q2

REPORT INFORMATION
  Report Type: Spontaneous
  Country: US (occurrence: US)
  Receive Date: 20140604
  Receipt Date: 20140604
  Transmission Date: 20141212
  Serious: Yes (Hospitalization)
  Sender: FDA-Public Use
  Company Number: US-GLAXOSMITHKLINE-A1074762A

PATIENT
  Age: 51 Year
  Sex: Male

DRUGS (3)
  1. ADVAIR [Suspect]
     Indication: BRONCHITIS CHRONIC
     Dosage: 1PUFF TWICE PER DAY
     Route: 055
  2. UNKNOWN DEVICE [Concomitant]
  3. STEROID [Concomitant]

REACTIONS (5)
  - Dyspnoea [Unknown]
  - Dyspnoea [Unknown]
  - Ill-defined disorder [Unknown]
  - Overdose [Not Recovered/Not Resolved]
  - Surgery [Unknown]
